FAERS Safety Report 6309644-3 (Version None)
Quarter: 2009Q3

REPORT INFORMATION
  Report Type: 
  Country: None (occurrence: None)
  Receive Date: 20090814
  Receipt Date: 20090806
  Transmission Date: 20100115
  Serious: Yes (Other)
  Sender: FDA-Public Use
  Company Number: PHHY2009JP33182

PATIENT
  Age: 68 Year
  Sex: Male

DRUGS (1)
  1. ZOMETA [Suspect]
     Indication: METASTASES TO BONE
     Dosage: 4 MG (PER ADMINISTRATION)
     Route: 042
     Dates: start: 20070901, end: 20090201

REACTIONS (3)
  - GINGIVAL PAIN [None]
  - OSTEONECROSIS [None]
  - TOOTH EXTRACTION [None]
